FAERS Safety Report 8255650-1 (Version None)
Quarter: 2012Q2

REPORT INFORMATION
  Report Type: 
  Country: None (occurrence: None)
  Receive Date: 20120403
  Receipt Date: 20120327
  Transmission Date: 20120825
  Serious: Yes (Hospitalization, Other)
  Sender: FDA-Public Use
  Company Number: PHHY2011JP108310

PATIENT
  Age: 70 Year
  Sex: Male
  Weight: 54 kg

DRUGS (11)
  1. ZYPREXA [Concomitant]
     Indication: RESTLESSNESS
     Dosage: 5 MG
     Route: 048
     Dates: end: 20111216
  2. ZOMETA [Suspect]
     Indication: METASTASES TO BONE
     Dosage: 4 MG, PER ADMINISTRATION
     Route: 041
     Dates: start: 20100204, end: 20111114
  3. DECADRON [Concomitant]
     Indication: MALAISE
     Dosage: 0.5 MG
     Route: 048
     Dates: end: 20111115
  4. LANSOPRAZOLE [Concomitant]
     Indication: GASTRITIS
     Dosage: 15 MG
     Route: 048
  5. PANTOSIN [Concomitant]
     Indication: BOWEL MOVEMENT IRREGULARITY
     Dosage: 1 G
     Route: 048
  6. SENNOSIDE [Concomitant]
     Indication: BOWEL MOVEMENT IRREGULARITY
     Dosage: 48 MG
     Route: 048
  7. MAGNESIUM OXIDE [Concomitant]
     Indication: BOWEL MOVEMENT IRREGULARITY
     Dosage: 1 G
     Route: 048
     Dates: end: 20111115
  8. MOBIC [Concomitant]
     Indication: CANCER PAIN
     Dosage: 10 MG, UNK
     Route: 048
     Dates: end: 20111115
  9. STEROIDS [Concomitant]
  10. TALION [Concomitant]
     Indication: HYPERSENSITIVITY
     Dosage: 20 MG
     Route: 048
     Dates: end: 20111115
  11. OXYCONTIN [Concomitant]
     Indication: CANCER PAIN
     Dosage: 120 MG, UNK
     Route: 048
     Dates: end: 20111116

REACTIONS (20)
  - FISTULA [None]
  - LYMPH NODE PAIN [None]
  - RED BLOOD CELL COUNT DECREASED [None]
  - PURULENT DISCHARGE [None]
  - HAEMATOCRIT DECREASED [None]
  - OSTEONECROSIS OF JAW [None]
  - EXPOSED BONE IN JAW [None]
  - LYMPHADENOPATHY [None]
  - PYREXIA [None]
  - ERYTHEMA [None]
  - HYPERGLYCAEMIA [None]
  - HAEMOGLOBIN DECREASED [None]
  - OSTEOMYELITIS [None]
  - ABSCESS JAW [None]
  - GINGIVAL ABSCESS [None]
  - PAIN IN JAW [None]
  - GINGIVAL INFECTION [None]
  - BLOOD LACTATE DEHYDROGENASE INCREASED [None]
  - SWELLING [None]
  - BLOOD SODIUM DECREASED [None]
